FAERS Safety Report 9558945 (Version 3)
Quarter: 2013Q4

REPORT INFORMATION
  Report Type: Spontaneous
  Country: DE (occurrence: DE)
  Receive Date: 20130927
  Receipt Date: 20131211
  Transmission Date: 20140711
  Serious: Yes (Hospitalization)
  Sender: FDA-Public Use
  Company Number: DE-ROCHE-1281716

PATIENT
  Sex: Female

DRUGS (3)
  1. XOLAIR [Suspect]
     Indication: URTICARIA CHOLINERGIC
     Route: 058
     Dates: start: 2010
  2. XOLAIR [Suspect]
     Indication: OFF LABEL USE
     Route: 058
     Dates: start: 20131113
  3. CIPROFLOXACIN [Concomitant]
     Indication: URINARY TRACT INFECTION
     Route: 048

REACTIONS (2)
  - Multiple sclerosis [Not Recovered/Not Resolved]
  - Off label use [Unknown]
